FAERS Safety Report 17863968 (Version 3)
Quarter: 2020Q2

REPORT INFORMATION
  Report Type: Spontaneous
  Country: US (occurrence: US)
  Receive Date: 20200605
  Receipt Date: 20200622
  Transmission Date: 20200714
  Serious: No
  Sender: FDA-Public Use
  Company Number: US-BEH-2020117906

PATIENT
  Age: 64 Year
  Sex: Male
  Weight: 112.47 kg

DRUGS (2)
  1. HIZENTRA [Suspect]
     Active Substance: HUMAN IMMUNOGLOBULIN G
     Indication: CHRONIC INFLAMMATORY DEMYELINATING POLYRADICULONEUROPATHY
     Dosage: 8 GRAM, QD
     Route: 058
     Dates: start: 20200509
  2. HIZENTRA [Suspect]
     Active Substance: HUMAN IMMUNOGLOBULIN G
     Dosage: 26 GRAM, QW
     Route: 058
     Dates: start: 20200514

REACTIONS (6)
  - Accidental overdose [Unknown]
  - No adverse event [Recovered/Resolved]
  - No adverse event [Unknown]
  - Erythema [Recovered/Resolved]
  - Infusion site extravasation [Recovered/Resolved]
  - Product use issue [Recovered/Resolved]

NARRATIVE: CASE EVENT DATE: 20200514
